FAERS Safety Report 16071280 (Version 1)
Quarter: 2019Q1

REPORT INFORMATION
  Report Type: Spontaneous
  Country: US (occurrence: US)
  Receive Date: 20190314
  Receipt Date: 20190314
  Transmission Date: 20190418
  Serious: No
  Sender: FDA-Public Use
  Company Number: US-PFIZER INC-2019105860

PATIENT
  Age: 67 Year
  Sex: Female

DRUGS (5)
  1. OXYMORPHONE [Suspect]
     Active Substance: OXYMORPHONE
     Dosage: UNK
  2. HYDROCHLOROTHIAZIDE. [Suspect]
     Active Substance: HYDROCHLOROTHIAZIDE
     Dosage: UNK
  3. PIROXICAM. [Suspect]
     Active Substance: PIROXICAM
     Dosage: UNK
  4. CELECOXIB. [Suspect]
     Active Substance: CELECOXIB
     Dosage: UNK
  5. KETOROLAC TROMETHAMINE. [Suspect]
     Active Substance: KETOROLAC TROMETHAMINE
     Dosage: UNK

REACTIONS (1)
  - Drug hypersensitivity [Unknown]
